FAERS Safety Report 11234881 (Version 1)
Quarter: 2015Q2

REPORT INFORMATION
  Report Type: Spontaneous
  Country: GB (occurrence: None)
  Receive Date: 20150630
  Receipt Date: 20150630
  Transmission Date: 20150821
  Serious: No
  Sender: FDA-Public Use
  Company Number: 1630692

PATIENT
  Age: 8 Year
  Sex: Male

DRUGS (3)
  1. ERYTHROMYCIN STEARATE [Suspect]
     Active Substance: ERYTHROMYCIN STEARATE
     Indication: LOWER RESPIRATORY TRACT INFECTION
  2. AMOXICILLIN. [Suspect]
     Active Substance: AMOXICILLIN
     Indication: LOWER RESPIRATORY TRACT INFECTION
  3. TRIHEXFENIDYL (NON-SPECIFIC) [Suspect]
     Active Substance: TRIHEXYPHENIDYL
     Indication: DROOLING

REACTIONS (15)
  - Lower respiratory tract infection [None]
  - Gastrointestinal stoma complication [None]
  - Small intestinal obstruction [None]
  - Peripheral coldness [None]
  - Hypokalaemia [None]
  - Tachycardia [None]
  - Respiratory rate increased [None]
  - Abdominal adhesions [None]
  - Dyspnoea [None]
  - Urine output decreased [None]
  - Lid sulcus deepened [None]
  - Acidosis [None]
  - Colonic pseudo-obstruction [None]
  - Hypophosphataemia [None]
  - Dry mouth [None]
